FAERS Safety Report 15755026 (Version 1)
Quarter: 2018Q4

REPORT INFORMATION
  Report Type: Spontaneous
  Country: US (occurrence: US)
  Receive Date: 20181224
  Receipt Date: 20181224
  Transmission Date: 20190205
  Serious: No
  Sender: FDA-Public Use
  Company Number: US-JNJFOC-20181210101

PATIENT
  Sex: Female

DRUGS (1)
  1. RISPERDAL CONSTA [Suspect]
     Active Substance: RISPERIDONE
     Indication: PRODUCT USED FOR UNKNOWN INDICATION
     Dosage: 75 MG RISPERDAL CONSTA WAS GIVEN AS TWO INJECTIONS: 50 MG AND 25 MG
     Route: 030

REACTIONS (3)
  - Aggression [Not Recovered/Not Resolved]
  - Off label use [Unknown]
  - Product use issue [Unknown]
